FAERS Safety Report 24990909 (Version 1)
Quarter: 2025Q1

REPORT INFORMATION
  Report Type: Spontaneous
  Country: US (occurrence: None)
  Receive Date: 20250220
  Receipt Date: 20250220
  Transmission Date: 20250408
  Serious: Yes (Other)
  Sender: FDA-CTU
  Company Number: None

PATIENT
  Age: 8 Year
  Sex: Female
  Weight: 22.5 kg

DRUGS (1)
  1. TRIKAFTA [Suspect]
     Active Substance: ELEXACAFTOR\IVACAFTOR\TEZACAFTOR
     Indication: Cystic fibrosis
     Dates: start: 20230921, end: 20250214

REACTIONS (7)
  - Behaviour disorder [None]
  - Aggression [None]
  - Aggression [None]
  - Aggression [None]
  - Self-injurious ideation [None]
  - Therapy change [None]
  - Therapy cessation [None]
